FAERS Safety Report 16473766 (Version 1)
Quarter: 2019Q2

REPORT INFORMATION
  Report Type: Spontaneous
  Country: US (occurrence: US)
  Receive Date: 20190515
  Receipt Date: 20190515
  Transmission Date: 20190711
  Serious: No
  Sender: FDA-Public Use
  Company Number: None

PATIENT
  Age: 66 Year
  Sex: Female
  Weight: 62.6 kg

DRUGS (1)
  1. FORTEO [Suspect]
     Active Substance: TERIPARATIDE
     Indication: OSTEOPOROSIS
     Route: 058
     Dates: start: 201903

REACTIONS (6)
  - Arthralgia [None]
  - Muscle spasms [None]
  - Upper-airway cough syndrome [None]
  - Spinal operation [None]
  - Therapy cessation [None]
  - Economic problem [None]
